FAERS Safety Report 7870540-1 (Version None)
Quarter: 2011Q4

REPORT INFORMATION
  Report Type: 
  Country: None (occurrence: None)
  Receive Date: 20111029
  Receipt Date: 20110217
  Transmission Date: 20120403
  Serious: No
  Sender: FDA-Public Use
  Company Number: US-AMGEN-USASP2011009495

PATIENT
  Age: 65 Year
  Sex: Female

DRUGS (2)
  1. ENBREL [Suspect]
     Indication: RHEUMATOID ARTHRITIS
     Dosage: 50 MG, QWK
     Dates: start: 20090304, end: 20110209
  2. INFLUENZA VACCINE [Concomitant]

REACTIONS (6)
  - SINUS CONGESTION [None]
  - SINUS DISORDER [None]
  - NASAL DRYNESS [None]
  - RASH MACULO-PAPULAR [None]
  - RASH PRURITIC [None]
  - URTICARIA [None]
